FAERS Safety Report 4961643-X (Version None)
Quarter: 2006Q1

REPORT INFORMATION
  Report Type: 
  Country: None (occurrence: None)
  Receive Date: 20060329
  Receipt Date: 20060316
  Transmission Date: 20060701
  Serious: Yes (Other)
  Sender: FDA-Public Use
  Company Number: 2006US000531

PATIENT

DRUGS (1)
  1. AMBISOME [Suspect]
     Indication: ANTIFUNGAL PROPHYLAXIS
     Dosage: 7.5 MG/KG, WEEKLY, IV NOS
     Route: 042

REACTIONS (2)
  - CHEST PAIN [None]
  - EXTRASYSTOLES [None]
